FAERS Safety Report 4280266-1 (Version None)
Quarter: 2004Q1

REPORT INFORMATION
  Report Type: 
  Country: None (occurrence: None)
  Receive Date: 20040126
  Receipt Date: 20040114
  Transmission Date: 20041129
  Serious: Yes (Disabling)
  Sender: FDA-Public Use
  Company Number: HQWYE909606AUG03

PATIENT
  Age: 49 Year
  Sex: Female

DRUGS (2)
  1. DIMETAPP [Suspect]
     Dosage: ORAL
     Route: 048
  2. TAVIST D [Suspect]
     Dosage: ORAL
     Route: 048

REACTIONS (2)
  - HAEMORRHAGIC STROKE [None]
  - HEMIPARESIS [None]
